FAERS Safety Report 6861266-1 (Version None)
Quarter: 2010Q3

REPORT INFORMATION
  Report Type: 
  Country: None (occurrence: None)
  Receive Date: 20100720
  Receipt Date: 20100709
  Transmission Date: 20110219
  Serious: Yes (Hospitalization)
  Sender: FDA-Public Use
  Company Number: US-CELGENEUS-163-20785-10042170

PATIENT
  Sex: Male

DRUGS (22)
  1. THALOMID [Suspect]
     Indication: MULTIPLE MYELOMA
     Route: 048
     Dates: start: 20100211
  2. THALOMID [Suspect]
     Route: 048
     Dates: start: 20100301
  3. THALOMID [Suspect]
     Route: 048
     Dates: start: 20100617, end: 20100628
  4. SINEMET [Suspect]
     Indication: PARKINSON'S DISEASE
     Dosage: 50/200
     Route: 048
  5. SINEMET [Suspect]
     Dosage: 10/100
     Route: 048
  6. DECADRON [Concomitant]
     Indication: MULTIPLE MYELOMA
     Route: 048
     Dates: start: 20100201
  7. ASPIRIN [Concomitant]
     Indication: MULTIPLE MYELOMA
     Route: 065
     Dates: start: 20100201
  8. ZOMETA [Concomitant]
     Indication: MULTIPLE MYELOMA
     Route: 051
     Dates: start: 20100301
  9. METFORMIN HCL [Concomitant]
     Indication: DIABETES MELLITUS
     Route: 048
  10. JANUVIA [Concomitant]
     Indication: DIABETES MELLITUS
     Route: 048
  11. LASIX [Concomitant]
     Route: 048
  12. LASIX [Concomitant]
     Route: 048
  13. FERGON [Concomitant]
     Indication: IRON DEFICIENCY
     Route: 065
     Dates: start: 20100201
  14. FERGON [Concomitant]
     Indication: ANAEMIA
  15. ALDACTONE [Concomitant]
     Route: 048
  16. PROSCAR [Concomitant]
     Route: 048
     Dates: start: 20090101
  17. FLOMAX [Concomitant]
     Route: 048
     Dates: start: 20100501
  18. FOLATE [Concomitant]
     Route: 048
  19. FOLATE [Concomitant]
     Indication: ANAEMIA
  20. FLUIDS [Concomitant]
     Indication: HYPOTENSION
     Route: 051
     Dates: start: 20100601
  21. PRANDIN [Concomitant]
     Indication: DIABETES MELLITUS
     Route: 065
  22. VITAMIN B-12 [Concomitant]
     Indication: ANAEMIA
     Route: 065

REACTIONS (6)
  - CONFUSIONAL STATE [None]
  - CONSTIPATION [None]
  - HYPOTENSION [None]
  - MALAISE [None]
  - METABOLIC ENCEPHALOPATHY [None]
  - POLLAKIURIA [None]
